FAERS Safety Report 15396912 (Version 2)
Quarter: 2018Q3

REPORT INFORMATION
  Report Type: Spontaneous
  Country: MA (occurrence: MA)
  Receive Date: 20180918
  Receipt Date: 20180921
  Transmission Date: 20181010
  Serious: Yes (Life-Threatening, Other)
  Sender: FDA-Public Use
  Company Number: MA-PFIZER INC-2018373998

PATIENT
  Age: 23 Year
  Sex: Female

DRUGS (1)
  1. ARTOTEC [Suspect]
     Active Substance: DICLOFENAC SODIUM\MISOPROSTOL
     Indication: ABORTION
     Dosage: 12 TABLETS PER DAY
     Route: 048
     Dates: start: 20170518, end: 20170519

REACTIONS (3)
  - Uterine haemorrhage [Recovered/Resolved]
  - Intentional overdose [Recovered/Resolved]
  - Product use in unapproved indication [Recovered/Resolved]

NARRATIVE: CASE EVENT DATE: 20170518
